FAERS Safety Report 13514148 (Version 1)
Quarter: 2017Q2

REPORT INFORMATION
  Report Type: Spontaneous
  Country: US (occurrence: US)
  Receive Date: 20170504
  Receipt Date: 20170504
  Transmission Date: 20170830
  Serious: Yes (Hospitalization)
  Sender: FDA-Public Use
  Company Number: None

PATIENT
  Age: 87 Year
  Sex: Female
  Weight: 88.2 kg

DRUGS (2)
  1. WARFARIN [Suspect]
     Active Substance: WARFARIN
     Indication: DIABETES MELLITUS
     Dosage: DOSE - 2.5MG (2-3 TABS AS DIRECT BY CLINIC)?DATES OF USE - CHRONIC
     Route: 048
  2. ASPIRIN. [Suspect]
     Active Substance: ASPIRIN
     Indication: DIABETES MELLITUS
     Dosage: DATES OF USE - CHRONIC
     Route: 048

REACTIONS (5)
  - Gastritis [None]
  - Adenocarcinoma of colon [None]
  - Renal mass [None]
  - Lower gastrointestinal haemorrhage [None]
  - Pulmonary mass [None]

NARRATIVE: CASE EVENT DATE: 20160927
